FAERS Safety Report 6987943-X (Version None)
Quarter: 2010Q3

REPORT INFORMATION
  Report Type: 
  Country: None (occurrence: None)
  Receive Date: 20100916
  Receipt Date: 20100910
  Transmission Date: 20110219
  Serious: No
  Sender: FDA-Public Use
  Company Number: US-ABBOTT-10P-163-0656643-00

PATIENT
  Sex: Male
  Weight: 65.376 kg

DRUGS (9)
  1. TRILIPIX [Suspect]
     Indication: BLOOD CHOLESTEROL INCREASED
     Route: 048
     Dates: start: 20100510, end: 20100601
  2. CRESTOR [Concomitant]
     Indication: BLOOD CHOLESTEROL INCREASED
  3. AMLODIPINE [Concomitant]
     Indication: HYPERTENSION
  4. AGGRENOX [Concomitant]
     Indication: ANTICOAGULANT THERAPY
  5. ACURINEX [Concomitant]
     Indication: PRODUCT USED FOR UNKNOWN INDICATION
  6. TRICOR [Concomitant]
     Indication: BLOOD CHOLESTEROL INCREASED
  7. ALLOPURINOL [Concomitant]
     Indication: GOUT
  8. SODIUM BICARBONATE [Concomitant]
     Indication: RENAL DISORDER
  9. MIRAPEX [Concomitant]
     Indication: RESTLESS LEGS SYNDROME

REACTIONS (3)
  - ARTHRALGIA [None]
  - GOUT [None]
  - MYALGIA [None]
